FAERS Safety Report 11201388 (Version 1)
Quarter: 2015Q2

REPORT INFORMATION
  Report Type: Spontaneous
  Country: FR (occurrence: None)
  Receive Date: 20150617
  Receipt Date: 20150617
  Transmission Date: 20150821
  Serious: Yes (Death, Hospitalization)
  Sender: FDA-Public Use
  Company Number: COR_00313_2015

PATIENT
  Age: 46 Year
  Sex: Female

DRUGS (16)
  1. DAUNORUBICIN (DAUNORUBICIN) [Suspect]
     Active Substance: DAUNORUBICIN
     Indication: ACUTE MYELOID LEUKAEMIA
     Dosage: DF
     Dates: start: 20120330
  2. VANCOMYCIN [Concomitant]
     Active Substance: VANCOMYCIN
  3. POSACONAZOLE [Concomitant]
     Active Substance: POSACONAZOLE
  4. PREDNISONE. [Concomitant]
     Active Substance: PREDNISONE
  5. METRONIDAZOLE. [Concomitant]
     Active Substance: METRONIDAZOLE
  6. LOMUSTINE (LOMUSTINE) [Suspect]
     Active Substance: LOMUSTINE
     Indication: ACUTE MYELOID LEUKAEMIA
     Dosage: DF
     Dates: start: 20120330
  7. AMIKACIN [Concomitant]
     Active Substance: AMIKACIN
  8. IDARUBICIN (IDARUBICIN) (IDARUBICIN) [Suspect]
     Active Substance: IDARUBICIN
     Indication: ACUTE MYELOID LEUKAEMIA
     Dosage: DF
     Dates: start: 20120330
  9. PIPERACILLIN/TAZOBACTAM [Concomitant]
     Active Substance: PIPERACILLIN SODIUM\TAZOBACTAM SODIUM
  10. COLISTIN [Concomitant]
     Active Substance: COLISTIN
  11. IMIPENEM [Concomitant]
     Active Substance: IMIPENEM
  12. GENTAMICIN. [Concomitant]
     Active Substance: GENTAMICIN
  13. CYTARABINE (CYTARABINE) [Suspect]
     Active Substance: CYTARABINE
     Indication: ACUTE MYELOID LEUKAEMIA
     Dosage: DF
     Dates: start: 20120330
  14. CASPOFUNGIN [Concomitant]
     Active Substance: CASPOFUNGIN
  15. CIPROFLOXACIN. [Concomitant]
     Active Substance: CIPROFLOXACIN
  16. AN TIBIOTICS [Concomitant]

REACTIONS (3)
  - Acute respiratory distress syndrome [None]
  - Septic shock [None]
  - Geotrichum infection [None]
